FAERS Safety Report 7432800-8 (Version None)
Quarter: 2011Q2

REPORT INFORMATION
  Report Type: 
  Country: None (occurrence: None)
  Receive Date: 20110422
  Receipt Date: 20110411
  Transmission Date: 20111010
  Serious: Yes (Other)
  Sender: FDA-Public Use
  Company Number: JP-SANOFI-AVENTIS-2011SA021973

PATIENT
  Age: 71 Year
  Sex: Male

DRUGS (4)
  1. FLUOROURACIL [Suspect]
     Indication: RECTAL CANCER METASTATIC
     Route: 065
  2. BEVACIZUMAB [Suspect]
     Indication: RECTAL CANCER METASTATIC
     Route: 065
  3. OXALIPLATIN [Suspect]
     Indication: RECTAL CANCER METASTATIC
     Route: 065
  4. LEUCOVORIN [Suspect]
     Indication: RECTAL CANCER METASTATIC
     Route: 065

REACTIONS (5)
  - INTERSTITIAL LUNG DISEASE [None]
  - DYSPNOEA [None]
  - PYREXIA [None]
  - RESPIRATORY FAILURE [None]
  - HYPOXIA [None]
